FAERS Safety Report 10022667 (Version 1)
Quarter: 2014Q1

REPORT INFORMATION
  Report Type: Spontaneous
  Country: US (occurrence: US)
  Receive Date: 20140319
  Receipt Date: 20140319
  Transmission Date: 20141002
  Serious: Yes (Other)
  Sender: FDA-Public Use
  Company Number: US-PFIZER INC-2014076629

PATIENT
  Age: 41 Year
  Sex: Female
  Weight: 108.84 kg

DRUGS (4)
  1. NEURONTIN [Suspect]
     Indication: DIABETIC NEUROPATHY
     Dosage: 75 MG, UNK
     Dates: start: 2011, end: 2011
  2. PLAVIX [Concomitant]
     Dosage: UNK
  3. KOMBIGLYZE XR [Concomitant]
     Dosage: UNK
  4. METFORMIN [Concomitant]
     Dosage: UNK

REACTIONS (2)
  - Blindness [Unknown]
  - Vision blurred [Unknown]
